FAERS Safety Report 18057002 (Version 1)
Quarter: 2020Q3

REPORT INFORMATION
  Report Type: Spontaneous
  Country: US (occurrence: US)
  Receive Date: 20200722
  Receipt Date: 20200722
  Transmission Date: 20201103
  Serious: No
  Sender: FDA-Public Use
  Company Number: US-VERITY PHARMACEUTICALS, INC.-2020VTY00119

PATIENT
  Sex: Female

DRUGS (2)
  1. TRELSTAR [Suspect]
     Active Substance: TRIPTORELIN PAMOATE
     Indication: PRODUCT USED FOR UNKNOWN INDICATION
     Dosage: 22.5 MG, ONCE (SINGLE), 1 IN 1 CYCLICAL
     Route: 030
  2. TRELSTAR [Suspect]
     Active Substance: TRIPTORELIN PAMOATE
     Dosage: 22.5 MG, ONCE (SINGLE), 1 IN 1 CYCLICAL
     Route: 030
     Dates: start: 20180727, end: 20180727

REACTIONS (4)
  - Abnormal behaviour [Unknown]
  - Emotional disorder [Recovered/Resolved]
  - Belligerence [Unknown]
  - Anger [Not Recovered/Not Resolved]

NARRATIVE: CASE EVENT DATE: 2018
